FAERS Safety Report 24769005 (Version 1)
Quarter: 2024Q4

REPORT INFORMATION
  Report Type: Spontaneous
  Country: GB (occurrence: GB)
  Receive Date: 20241224
  Receipt Date: 20241224
  Transmission Date: 20250114
  Serious: Yes (Hospitalization, Other)
  Sender: TEVA
  Company Number: None

PATIENT
  Age: 86 Year
  Sex: Male

DRUGS (27)
  1. DEXAMETHASONE [Suspect]
     Active Substance: DEXAMETHASONE
     Indication: Product used for unknown indication
     Dosage: 14 TABLET
     Route: 065
     Dates: start: 20240717
  2. DEXAMETHASONE [Suspect]
     Active Substance: DEXAMETHASONE
     Indication: Product used for unknown indication
     Dosage: MORNING
     Route: 065
  3. RAMIPRIL [Concomitant]
     Active Substance: RAMIPRIL
     Indication: Product used for unknown indication
  4. NITROFURANTOIN [Concomitant]
     Active Substance: NITROFURANTOIN
     Indication: Product used for unknown indication
     Dosage: MODIFIED-RELEASE CAPSULE, 14 CAPSULE
     Dates: start: 20240726
  5. METOCLOPRAMIDE [Concomitant]
     Active Substance: METOCLOPRAMIDE
     Indication: Product used for unknown indication
     Dosage: OUTSIDE
     Dates: start: 20240724
  6. OXYCODONE [Concomitant]
     Active Substance: OXYCODONE
     Indication: Product used for unknown indication
     Dosage: WIFE STATES 40MG TWICE A DAY DOSE - 20MG TWICE A DAY IN BLISTER AND 20MG TWICE A DAY OUTSIDE
     Dates: start: 20240814
  7. HALOPERIDOL [Concomitant]
     Active Substance: HALOPERIDOL
     Indication: Product used for unknown indication
     Dosage: FORM STRENGTH: 5 MG / 5 ML, AT NIGHT.100 ML, SUGAR FREE
     Dates: start: 20240724
  8. HALOPERIDOL [Concomitant]
     Active Substance: HALOPERIDOL
     Indication: Product used for unknown indication
     Dosage: FORM STRENGTH: 10 MG / 5 ML, SUGAR FREE, AT NIGHT, 100 ML - WIFE STATES ONLY, 1 DOSE BEFORE ADMIS...
     Route: 048
     Dates: start: 20240725
  9. CALCIUM CARBONATE\CHOLECALCIFEROL [Concomitant]
     Active Substance: CALCIUM CARBONATE\CHOLECALCIFEROL
     Indication: Product used for unknown indication
     Dosage: FORM STRENGTH: 1500MG/400UNIT
  10. FLUTICASONE PROPIONATE\SALMETEROL XINAFOATE [Concomitant]
     Active Substance: FLUTICASONE PROPIONATE\SALMETEROL XINAFOATE
     Indication: Product used for unknown indication
     Dosage: FORM STRENGTH: 25MICROGRAMS/DOSE / 125MICROGRAMS/DOSE, INHALER, TWO PUFFS TO BE INHALED TWICE A D...
     Route: 055
     Dates: start: 20240724
  11. SOLIFENACIN [Concomitant]
     Active Substance: SOLIFENACIN
     Indication: Product used for unknown indication
  12. NICORANDIL [Concomitant]
     Active Substance: NICORANDIL
     Indication: Product used for unknown indication
  13. ASPIRIN [Concomitant]
     Active Substance: ASPIRIN
     Indication: Product used for unknown indication
     Dates: start: 20240626
  14. TRIPTORELIN [Concomitant]
     Active Substance: TRIPTORELIN
     Indication: Product used for unknown indication
     Dosage: USE ONCE EVERY SIX MONTHS
     Dates: start: 20240325
  15. AMLODIPINE [Concomitant]
     Active Substance: AMLODIPINE BESYLATE
     Indication: Product used for unknown indication
     Dosage: AT THE SAME TIME EACH DAY
     Dates: start: 20240626
  16. LANSOPRAZOLE [Concomitant]
     Active Substance: LANSOPRAZOLE
     Indication: Product used for unknown indication
     Dosage: MORNING
  17. ATENOLOL [Concomitant]
     Active Substance: ATENOLOL
     Indication: Product used for unknown indication
     Dates: start: 20240626
  18. ENSURE [Concomitant]
     Active Substance: AMINO ACIDS\DEXTROSE\ELECTROLYTES NOS\SOYBEAN OIL\VITAMINS
     Indication: Product used for unknown indication
     Dosage: GENERIC ENSURE PLUS MILKSHAKE STYLE LIQUID (FLAVOUR NOT SPECIFIED), WHEN REQUIRED - TAKES 1-2 AS ...
     Dates: start: 20240725
  19. ACETAMINOPHEN [Concomitant]
     Active Substance: ACETAMINOPHEN
     Indication: Product used for unknown indication
     Dosage: TWO TO BE TAKEN EVERY 4-6 HOURS FOUR TIMES A DAY
     Dates: start: 20240801
  20. ISOSORBIDE MONONITRATE [Concomitant]
     Active Substance: ISOSORBIDE MONONITRATE
     Indication: Product used for unknown indication
     Dosage: TAKE HALF OF ONE TABLET ONCE DAILY
  21. ALBUTEROL [Concomitant]
     Active Substance: ALBUTEROL
     Indication: Product used for unknown indication
     Dosage: ONE OR TWO PUFFS TO BE INHALED FOUR TIMES A DAY WHEN REQUIRED - USES, INHALER CFC FREE
     Route: 055
     Dates: start: 20240724
  22. Cetraben [Concomitant]
     Indication: Product used for unknown indication
     Dosage: WHEN NEEDED FOR DRY SKIN - NO LONGER USES
     Dates: start: 20240718
  23. SENNA [Concomitant]
     Active Substance: SENNA LEAF\SENNOSIDES\SENNOSIDES A AND B
     Indication: Product used for unknown indication
     Dosage: AT NIGHT
  24. DOCUSATE [Concomitant]
     Active Substance: DOCUSATE
     Indication: Constipation
     Dosage: TAKE ONE OR TWO CAPSULES TWICE DAILY WHEN REQUIRED FOR CONSTIPATION 40 CAPSULE - PHARMACY CONFIRMS
     Dates: start: 20240717
  25. OXYCODONE HYDROCHLORIDE [Concomitant]
     Active Substance: OXYCODONE HYDROCHLORIDE
     Indication: Breakthrough pain
     Dosage: TIME INTERVAL: AS NECESSARY: IDEALLY 4 HOURLY AS NEEDED. 56 CAPSULE - WIFE STATES AS NEEDED
     Dates: start: 20240724
  26. ALLOPURINOL [Concomitant]
     Active Substance: ALLOPURINOL
     Indication: Product used for unknown indication
     Dosage: AFTER FOOD
     Dates: start: 20240626
  27. LACTULOSE [Concomitant]
     Active Substance: LACTULOSE
     Indication: Product used for unknown indication
     Dosage: TIME INTERVAL: AS NECESSARY: FORM STRENGTH: 3.1-3.7 G / 5 ML, THREE 5 ML SPOONFULS TO BE TAKEN TW...
     Route: 048
     Dates: start: 20240717

REACTIONS (2)
  - Hallucination [Unknown]
  - Confusional state [Unknown]
